FAERS Safety Report 6300235-7 (Version None)
Quarter: 2009Q3

REPORT INFORMATION
  Report Type: 
  Country: None (occurrence: None)
  Receive Date: 20090803
  Receipt Date: 20090720
  Transmission Date: 20100115
  Serious: Yes (Other)
  Sender: FDA-Public Use
  Company Number: ADR7822009

PATIENT
  Age: 50 Year
  Sex: Female

DRUGS (6)
  1. ALENDRONATE SODIUM [Suspect]
     Indication: OSTEOPOROSIS
     Dosage: 20 MG WEEKLY, ORAL
     Route: 048
     Dates: start: 20070202, end: 20070301
  2. ACETAMINOPHEN W/ CODEINE [Concomitant]
  3. DIAZEPAM [Concomitant]
  4. DICLOFENAC [Concomitant]
  5. HORMONE REPLACEMENT THERAPY [Concomitant]
  6. PREMARIN [Concomitant]

REACTIONS (3)
  - ANAPHYLACTOID REACTION [None]
  - ANXIETY [None]
  - DYSPNOEA [None]
